FAERS Safety Report 9460361 (Version 1)
Quarter: 2013Q3

REPORT INFORMATION
  Report Type: Spontaneous
  Country: US (occurrence: US)
  Receive Date: 20130815
  Receipt Date: 20130815
  Transmission Date: 20140515
  Serious: Yes (Hospitalization, Other)
  Sender: FDA-Public Use
  Company Number: US-ACTAVIS-2013-14198

PATIENT
  Age: 38 Year
  Sex: Male

DRUGS (3)
  1. TERBINAFINE HYDROCHLORIDE (UNKNOWN) [Suspect]
     Indication: TINEA PEDIS
     Dosage: UNK
     Route: 048
  2. PREDNISONE (WATSON LABORATORIES) [Suspect]
     Indication: ACUTE GENERALISED EXANTHEMATOUS PUSTULOSIS
     Dosage: 80 MG, DAILY
     Route: 048
  3. PREDNISONE (WATSON LABORATORIES) [Suspect]
     Dosage: 40 MG, DAILY
     Route: 048

REACTIONS (2)
  - Acute generalised exanthematous pustulosis [Recovering/Resolving]
  - Condition aggravated [Recovering/Resolving]
